FAERS Safety Report 9154955 (Version 2)
Quarter: 2013Q1

REPORT INFORMATION
  Report Type: Spontaneous
  Country: US (occurrence: None)
  Receive Date: 20130205
  Receipt Date: 20130318
  Transmission Date: 20140127
  Serious: Yes (Hospitalization)
  Sender: FDA-Public Use
  Company Number: 2013-000306

PATIENT
  Age: 64 Year
  Sex: Female
  Weight: 77.2 kg

DRUGS (4)
  1. ESTRACE [Suspect]
     Dosage: EVERY MONDAY, WEDNESDAY AND FRIDAY, VAGINAL
  2. HYDROCHLOROTHIAZIDE (HYDROCHLOROTHIAZIDE) [Suspect]
  3. RANITIDINE (RANITIDINE) [Suspect]
  4. ENJUVIA [Suspect]
     Route: 048

REACTIONS (7)
  - Upper respiratory tract infection [None]
  - Urinary tract infection [None]
  - Tonsillar disorder [None]
  - Sinus tachycardia [None]
  - Electrocardiogram T wave inversion [None]
  - Pharyngitis [None]
  - Rhinitis [None]
